FAERS Safety Report 9396639 (Version 1)
Quarter: 2013Q3

REPORT INFORMATION
  Report Type: Spontaneous
  Country: US (occurrence: US)
  Receive Date: 20130711
  Receipt Date: 20130711
  Transmission Date: 20140515
  Serious: Yes (Hospitalization, Disabling)
  Sender: FDA-Public Use
  Company Number: US-BIOGENIDEC-2013BI061526

PATIENT
  Sex: Male

DRUGS (1)
  1. TYSABRI [Suspect]
     Indication: RELAPSING-REMITTING MULTIPLE SCLEROSIS
     Dates: end: 201301

REACTIONS (4)
  - Infection [Recovered/Resolved with Sequelae]
  - Gangrene [Unknown]
  - Cystitis [Not Recovered/Not Resolved]
  - Decubitus ulcer [Unknown]
